FAERS Safety Report 8247687 (Version 2)
Quarter: 2012Q4

REPORT INFORMATION
  Report Type: 
  Country: US (occurrence: US)
  Receive Date: 20111116
  Receipt Date: 20120831
  Transmission Date: 20130627
  Serious: Yes (Life-Threatening, Hospitalization, Other)
  Sender: FDA-Public Use
  Company Number: US-US-EMD SERONO, INC.-7094586

PATIENT
  Age: 64 None
  Sex: Female

DRUGS (5)
  1. REBIF [Suspect]
     Indication: MULTIPLE SCLEROSIS
     Route: 058
     Dates: start: 20081105, end: 201105
  2. REBIF [Suspect]
     Route: 058
     Dates: start: 201105
  3. LOSARTAN HCTZ [Concomitant]
     Indication: HYPERTENSION
  4. VESICARE [Concomitant]
     Indication: PRODUCT USED FOR UNKNOWN INDICATION
  5. BACLOFEN [Concomitant]
     Indication: PRODUCT USED FOR UNKNOWN INDICATION

REACTIONS (4)
  - Post procedural haemorrhage [Recovering/Resolving]
  - Coronary artery disease [Not Recovered/Not Resolved]
  - Arterial repair [Recovered/Resolved]
  - Urinary tract infection [Unknown]
